FAERS Safety Report 6126229-2 (Version None)
Quarter: 2009Q1

REPORT INFORMATION
  Report Type: 
  Country: None (occurrence: None)
  Receive Date: 20090320
  Receipt Date: 20090309
  Transmission Date: 20090719
  Serious: No
  Sender: FDA-Public Use
  Company Number: JAFRA37221

PATIENT
  Sex: Female
  Weight: 78 kg

DRUGS (2)
  1. NIZORAL [Suspect]
     Indication: VULVOVAGINAL MYCOTIC INFECTION
     Route: 048
     Dates: start: 19970308, end: 19970316
  2. FUNGIZONE [Suspect]
     Indication: DRUG USE FOR UNKNOWN INDICATION
     Route: 048
     Dates: start: 19970227, end: 19970301

REACTIONS (1)
  - ABORTION SPONTANEOUS [None]
